FAERS Safety Report 6984046-5 (Version None)
Quarter: 2010Q3

REPORT INFORMATION
  Report Type: 
  Country: None (occurrence: None)
  Receive Date: 20100915
  Receipt Date: 20090512
  Transmission Date: 20110219
  Serious: No
  Sender: FDA-Public Use
  Company Number: US-WYE-H09317509

PATIENT
  Sex: Female

DRUGS (3)
  1. PRISTIQ [Suspect]
     Route: 048
     Dates: start: 20090401
  2. PRISTIQ [Suspect]
     Route: 048
     Dates: start: 20090508
  3. BENICAR HCT [Concomitant]

REACTIONS (5)
  - ABDOMINAL DISCOMFORT [None]
  - GASTRIC PH DECREASED [None]
  - INSOMNIA [None]
  - NAUSEA [None]
  - VOMITING [None]
